FAERS Safety Report 8509474-8 (Version None)
Quarter: 2012Q3

REPORT INFORMATION
  Report Type: 
  Country: None (occurrence: None)
  Receive Date: 20120713
  Receipt Date: 20120704
  Transmission Date: 20120928
  Serious: Yes (Hospitalization)
  Sender: FDA-Public Use
  Company Number: BR-ASTRAZENECA-2012SE45633

PATIENT
  Age: 68 Year
  Sex: Female
  Weight: 64 kg

DRUGS (4)
  1. ASPIRIN PREVENT [Concomitant]
     Route: 048
  2. NEXIUM [Suspect]
     Indication: NAUSEA
     Route: 048
     Dates: start: 20120101
  3. METOPROLOL SUCCINATE [Suspect]
     Route: 048
     Dates: start: 20110101
  4. SIMVASTATIN [Suspect]
     Route: 048
     Dates: end: 20120301

REACTIONS (3)
  - BLOOD CHOLESTEROL INCREASED [None]
  - BLOOD PRESSURE INCREASED [None]
  - NAUSEA [None]
